FAERS Safety Report 6169243-3 (Version None)
Quarter: 2009Q2

REPORT INFORMATION
  Report Type: 
  Country: None (occurrence: None)
  Receive Date: 20090424
  Receipt Date: 20090409
  Transmission Date: 20091009
  Serious: Yes (Death, Hospitalization)
  Sender: FDA-Public Use
  Company Number: 2009001086

PATIENT
  Age: 31 Year
  Sex: Female

DRUGS (2)
  1. ERLOTINIB(ERLOTINIB)(TABLET)(ERLOTINIB) [Suspect]
     Indication: GLIOBLASTOMA MULTIFORME
     Dosage: (150 MG,QD),ORAL
     Route: 048
     Dates: start: 20080329, end: 20080526
  2. TEMSIROLIMUS [Concomitant]

REACTIONS (6)
  - BACTERIAL INFECTION [None]
  - CENTRAL NERVOUS SYSTEM INFECTION [None]
  - CULTURE WOUND POSITIVE [None]
  - INTRACRANIAL HYPOTENSION [None]
  - SUBDURAL HAEMATOMA [None]
  - WOUND COMPLICATION [None]
